FAERS Safety Report 8954175 (Version 3)
Quarter: 2013Q1

REPORT INFORMATION
  Report Type: Spontaneous
  Country: FR (occurrence: FR)
  Receive Date: 20121207
  Receipt Date: 20130116
  Transmission Date: 20140127
  Serious: Yes (Hospitalization, Other)
  Sender: FDA-Public Use
  Company Number: FR-AMGEN-FRASP2012077464

PATIENT
  Age: 74 Year
  Sex: Male
  Weight: 68 kg

DRUGS (3)
  1. ARANESP [Suspect]
     Indication: PRODUCT USED FOR UNKNOWN INDICATION
  2. EPORATIO [Suspect]
     Dosage: 20000 UNIT, QWK
     Route: 058
  3. GEMCITABINE [Concomitant]
     Indication: PANCREATIC CARCINOMA

REACTIONS (2)
  - Thrombosis [Unknown]
  - Phlebitis [Recovering/Resolving]
